FAERS Safety Report 7340698-1 (Version None)
Quarter: 2011Q1

REPORT INFORMATION
  Report Type: 
  Country: None (occurrence: None)
  Receive Date: 20110309
  Receipt Date: 20110228
  Transmission Date: 20110831
  Serious: Yes (Other)
  Sender: FDA-Public Use
  Company Number: US-JNJFOC-20101105624

PATIENT
  Sex: Female
  Weight: 73.03 kg

DRUGS (12)
  1. NEURONTIN [Concomitant]
     Indication: MUSCLE SPASMS
     Route: 048
  2. CALCIUM [Concomitant]
     Indication: NUTRITIONAL SUPPORT
     Route: 048
  3. VITAMIN D [Concomitant]
     Indication: NUTRITIONAL SUPPORT
     Route: 048
  4. HYOMAX [Concomitant]
     Indication: IRRITABLE BOWEL SYNDROME
     Route: 060
  5. FOLIC ACID [Concomitant]
     Indication: NUTRITIONAL SUPPORT
     Route: 048
  6. METHOTREXATE [Concomitant]
     Indication: RHEUMATOID ARTHRITIS
     Dosage: DOSE: 20MG/TABLET/2.5MG8 TABLETS ONCE WEEKLY
     Route: 048
  7. LIPITOR [Concomitant]
     Indication: BLOOD CHOLESTEROL INCREASED
     Route: 048
  8. REMICADE [Suspect]
     Route: 042
  9. CRESTOR [Concomitant]
     Indication: BLOOD CHOLESTEROL INCREASED
     Route: 048
  10. REMICADE [Suspect]
     Indication: RHEUMATOID ARTHRITIS
     Route: 042
  11. ACTONEL [Concomitant]
     Indication: OSTEOARTHRITIS
     Route: 048
  12. VITAMIN B [Concomitant]
     Indication: NUTRITIONAL SUPPORT
     Route: 048

REACTIONS (14)
  - HYPERTENSION [None]
  - HEART VALVE INCOMPETENCE [None]
  - HIP ARTHROPLASTY [None]
  - NAUSEA [None]
  - COUGH [None]
  - BLOOD GLUCOSE DECREASED [None]
  - AKATHISIA [None]
  - ERYTHEMA [None]
  - BREAST CANCER [None]
  - SLEEP APNOEA SYNDROME [None]
  - BLOOD URINE PRESENT [None]
  - MUSCLE TIGHTNESS [None]
  - CHEST DISCOMFORT [None]
  - SCOLIOSIS [None]
